FAERS Safety Report 4596938-5 (Version None)
Quarter: 2005Q1

REPORT INFORMATION
  Report Type: 
  Country: None (occurrence: None)
  Receive Date: 20050228
  Receipt Date: 20040720
  Transmission Date: 20050727
  Serious: Yes (Other)
  Sender: FDA-Public Use
  Company Number: 8537

PATIENT
  Age: 26 Year
  Sex: Female

DRUGS (7)
  1. METHOTREXATE [Suspect]
     Indication: JUVENILE ARTHRITIS
     Dosage: 10 MG WEEKLY PO
     Route: 048
     Dates: start: 20040301, end: 20040509
  2. ESOMEPRAZOLE [Concomitant]
  3. LEVOFLOXACIN [Concomitant]
  4. DOXYCYCLINE [Concomitant]
  5. CEFOTETAN [Concomitant]
  6. HYDROCORTISONE [Concomitant]
  7. ACETAMINOPHEN [Concomitant]

REACTIONS (4)
  - ESCHERICHIA BACTERAEMIA [None]
  - IRON DEFICIENCY [None]
  - NORMOCHROMIC NORMOCYTIC ANAEMIA [None]
  - PYELONEPHRITIS [None]
